FAERS Safety Report 6703411-4 (Version None)
Quarter: 2010Q2

REPORT INFORMATION
  Report Type: 
  Country: None (occurrence: None)
  Receive Date: 20100423
  Receipt Date: 20100104
  Transmission Date: 20101027
  Serious: No
  Sender: FDA-Public Use
  Company Number: ALL1-2009-03242

PATIENT
  Age: 13 Year
  Sex: Male
  Weight: 71.2 kg

DRUGS (3)
  1. VYVANSE [Suspect]
     Indication: AUTISM
     Dosage: 40 MG, 1X/DAY:QD,ORAL
     Route: 048
     Dates: start: 20090901
  2. LORAZEPAM [Concomitant]
  3. GEODON /01487002/(ZIPRASIDONE HYDROCHLORIDE) [Concomitant]

REACTIONS (5)
  - DYSPNOEA [None]
  - FALL [None]
  - OFF LABEL USE [None]
  - OROPHARYNGEAL PAIN [None]
  - SUDDEN ONSET OF SLEEP [None]
